FAERS Safety Report 6073439-9 (Version None)
Quarter: 2009Q1

REPORT INFORMATION
  Report Type: 
  Country: None (occurrence: None)
  Receive Date: 20090211
  Receipt Date: 20090123
  Transmission Date: 20090719
  Serious: Yes (Other)
  Sender: FDA-Public Use
  Company Number: PHHY2008BR32907

PATIENT
  Sex: Female

DRUGS (1)
  1. FLOTAC [Suspect]
     Dosage: UNK
     Route: 048
     Dates: start: 20081221

REACTIONS (4)
  - ACCIDENTAL EXPOSURE [None]
  - DIZZINESS [None]
  - GASTRIC LAVAGE [None]
  - VOMITING [None]
